FAERS Safety Report 5748906-5 (Version None)
Quarter: 2008Q2

REPORT INFORMATION
  Report Type: 
  Country: None (occurrence: None)
  Receive Date: 20080525
  Receipt Date: 20080509
  Transmission Date: 20081010
  Serious: Yes (Hospitalization)
  Sender: FDA-Public Use
  Company Number: US-ABBOTT-08P-163-0447398-00

PATIENT
  Sex: Male

DRUGS (12)
  1. RITONAVIR SOFT GELATIN CAPSULES [Suspect]
     Indication: HIV INFECTION
     Dosage: 250MG/100 MG 2 TWICE A DAY
     Route: 048
     Dates: start: 20060901, end: 20080319
  2. RITONAVIR SOFT GELATIN CAPSULES [Suspect]
     Dosage: 200 MG BID
  3. APTIVUS [Suspect]
     Indication: HIV INFECTION
     Dosage: 250MG/100MG 2 TWICE A DAY
     Dates: start: 20060901, end: 20080319
  4. LAMIVUDINE [Concomitant]
     Indication: DRUG USE FOR UNKNOWN INDICATION
     Dosage: 150MG, 1 IN 1 D
     Route: 048
  5. STAVUDINE [Concomitant]
     Indication: DRUG USE FOR UNKNOWN INDICATION
     Dosage: 20 MG DAILY
  6. ENFUVIRTIDE [Concomitant]
     Indication: DRUG USE FOR UNKNOWN INDICATION
     Dosage: 180 MG DAILY, 90 MG BID
     Route: 058
  7. ACYCLOVIR [Concomitant]
     Indication: DRUG USE FOR UNKNOWN INDICATION
     Dosage: 800 MG, 1IN 1 D
     Route: 048
  8. BACTRIM [Concomitant]
     Indication: DRUG USE FOR UNKNOWN INDICATION
     Dosage: 1 DAILY
     Route: 048
  9. DILTIAZEM [Concomitant]
     Indication: DRUG USE FOR UNKNOWN INDICATION
  10. LISINOPRIL [Concomitant]
     Indication: DRUG USE FOR UNKNOWN INDICATION
     Dosage: 20 MG, 1 IN 1 D
     Route: 048
  11. ITRACONAZOLE [Concomitant]
     Indication: DRUG USE FOR UNKNOWN INDICATION
  12. GABAPENTIN [Concomitant]
     Indication: DRUG USE FOR UNKNOWN INDICATION

REACTIONS (12)
  - ACUTE SINUSITIS [None]
  - BLOOD CREATININE INCREASED [None]
  - BRADYCARDIA [None]
  - BRAIN ABSCESS [None]
  - CONVULSION [None]
  - FALL [None]
  - HAEMORRHAGE INTRACRANIAL [None]
  - HEAD INJURY [None]
  - MENTAL STATUS CHANGES [None]
  - SINUSITIS [None]
  - SUBARACHNOID HAEMORRHAGE [None]
  - SYNCOPE [None]
